FAERS Safety Report 12214754 (Version 1)
Quarter: 2016Q1

REPORT INFORMATION
  Report Type: Spontaneous
  Country: US (occurrence: US)
  Receive Date: 20160328
  Receipt Date: 20160328
  Transmission Date: 20160526
  Serious: No
  Sender: FDA-Public Use
  Company Number: US-B.I. PHARMACEUTICALS,INC./RIDGEFIELD-2016-BI-15400BP

PATIENT
  Age: 62 Year
  Sex: Male

DRUGS (4)
  1. VENTOILIN [Concomitant]
     Dosage: NEBULIZER
     Route: 055
  2. PULMICORT TURBUHALER [Concomitant]
     Active Substance: BUDESONIDE
     Indication: ASTHMA
     Dosage: 0.25 MG
     Route: 055
     Dates: start: 2014
  3. SPIRIVA [Suspect]
     Active Substance: TIOTROPIUM BROMIDE MONOHYDRATE
     Indication: ASTHMA
     Dosage: 4 PUF
     Route: 055
     Dates: start: 201602
  4. VENTOILIN [Concomitant]
     Indication: ASTHMA
     Dosage: INHALATION SOLUTION, INHALER
     Route: 055

REACTIONS (2)
  - Incorrect dose administered [Unknown]
  - Heart rate irregular [Recovered/Resolved]

NARRATIVE: CASE EVENT DATE: 201602
